FAERS Safety Report 14966930 (Version 2)
Quarter: 2018Q4

REPORT INFORMATION
  Report Type: Spontaneous
  Country: US (occurrence: US)
  Receive Date: 20180604
  Receipt Date: 20181229
  Transmission Date: 20190204
  Serious: No
  Sender: FDA-Public Use
  Company Number: US-TEVA-2018-US-897806

PATIENT
  Age: 48 Year
  Sex: Female

DRUGS (1)
  1. ACTIQ [Suspect]
     Active Substance: FENTANYL CITRATE
     Indication: BREAKTHROUGH PAIN
     Route: 048

REACTIONS (6)
  - Pain [Unknown]
  - Mastication disorder [Unknown]
  - Oral infection [Not Recovered/Not Resolved]
  - Dental caries [Unknown]
  - Emotional distress [Unknown]
  - Tooth loss [Unknown]
